FAERS Safety Report 12884630 (Version 1)
Quarter: 2016Q4

REPORT INFORMATION
  Report Type: Report from Study
  Country: AU (occurrence: AU)
  Receive Date: 20161026
  Receipt Date: 20161026
  Transmission Date: 20170207
  Serious: Yes (Hospitalization, Other)
  Sender: FDA-Public Use
  Company Number: AU-REGENERON PHARMACEUTICALS, INC.-2016-22947

PATIENT

DRUGS (1)
  1. EYLEA [Suspect]
     Active Substance: AFLIBERCEPT
     Indication: NEOVASCULAR AGE-RELATED MACULAR DEGENERATION
     Dosage: 2 MG, TOTAL NUMBER OF INJECTIONS RECEIVED AND DATE WHEN LAST DOSE WAS GIVEN WERE UNSPECIFIED.
     Route: 031

REACTIONS (2)
  - Hospitalisation [Unknown]
  - Deafness [Unknown]
